FAERS Safety Report 8303790-0 (Version None)
Quarter: 2012Q2

REPORT INFORMATION
  Report Type: 
  Country: None (occurrence: None)
  Receive Date: 20120423
  Receipt Date: 20120413
  Transmission Date: 20120825
  Serious: Yes (Other)
  Sender: FDA-Public Use
  Company Number: PHHY2012FR031904

PATIENT
  Sex: Female

DRUGS (4)
  1. ALLOPURINOL [Suspect]
     Dosage: UNK
  2. SYMBICORT [Concomitant]
     Dosage: UNK
  3. VALSARTAN  AND HYDROCHLOROTHIAZIDE [Suspect]
     Indication: HYPERTENSION
     Dosage: UNK
  4. METFORMIN HCL [Concomitant]
     Dosage: UNK

REACTIONS (9)
  - LIP BLISTER [None]
  - CONSTIPATION [None]
  - PRURITUS [None]
  - MUSCLE SPASMS [None]
  - PIGMENTATION DISORDER [None]
  - DRUG RASH WITH EOSINOPHILIA AND SYSTEMIC SYMPTOMS [None]
  - DECREASED APPETITE [None]
  - FATIGUE [None]
  - PHOTOPHOBIA [None]
